FAERS Safety Report 11640390 (Version 3)
Quarter: 2016Q3

REPORT INFORMATION
  Report Type: Report from Study
  Country: KR (occurrence: KR)
  Receive Date: 20151019
  Receipt Date: 20160823
  Transmission Date: 20161109
  Serious: Yes (Hospitalization, Other)
  Sender: FDA-Public Use
  Company Number: KR-OTSUKA-JP-2014-15515

PATIENT
  Age: 62 Year
  Sex: Male

DRUGS (26)
  1. BLINDED PROBUCOL [Suspect]
     Active Substance: PROBUCOL
     Indication: CEREBRAL INFARCTION
     Dosage: UNK
     Route: 048
     Dates: start: 20111207, end: 20120129
  2. BLINDED *PLACEBO [Suspect]
     Active Substance: INVESTIGATIONAL PRODUCT
     Dosage: UNK
     Route: 048
     Dates: end: 20120220
  3. BLINDED PROBUCOL [Suspect]
     Active Substance: PROBUCOL
     Dosage: UNK
     Route: 048
     Dates: end: 20120220
  4. BLINDED *PLACEBO [Suspect]
     Active Substance: INVESTIGATIONAL PRODUCT
     Indication: CEREBRAL INFARCTION
     Dosage: UNK
     Route: 048
     Dates: start: 20111207, end: 20120129
  5. BLINDED *PLACEBO [Suspect]
     Active Substance: INVESTIGATIONAL PRODUCT
     Dosage: UNK
  6. NORVASC [Concomitant]
     Active Substance: AMLODIPINE BESYLATE
     Indication: HYPERTENSION
     Dosage: UNK
     Route: 065
     Dates: start: 20111109
  7. LANTUS [Concomitant]
     Active Substance: INSULIN GLARGINE
     Indication: DIABETES MELLITUS
     Dosage: UNK
     Route: 065
     Dates: start: 20111111
  8. BLINDED CILOSTAZOL [Suspect]
     Active Substance: CILOSTAZOL
     Indication: CEREBRAL INFARCTION
     Dosage: UNK
     Route: 048
     Dates: start: 20111207, end: 20120129
  9. BLINDED *ASPIRIN [Suspect]
     Active Substance: ASPIRIN
     Dosage: UNK
  10. BLINDED CILOSTAZOL [Suspect]
     Active Substance: CILOSTAZOL
     Dosage: UNK
  11. ACTOS MET [Concomitant]
     Indication: DIABETES MELLITUS
     Dosage: UNK
     Route: 065
     Dates: start: 20111202
  12. LOSARTAN CJ [Concomitant]
     Indication: HYPERTENSION
     Dosage: UNK
     Route: 065
     Dates: start: 20111115
  13. BLINDED *ASPIRIN [Suspect]
     Active Substance: ASPIRIN
     Indication: CEREBRAL INFARCTION
     Dosage: UNK
     Route: 048
     Dates: start: 20111207, end: 20120129
  14. PROBUCOL [Suspect]
     Active Substance: PROBUCOL
     Indication: CEREBRAL INFARCTION
     Dosage: 250 MG, BID
     Route: 048
     Dates: start: 20111207, end: 20120129
  15. FOLIC ACID. [Concomitant]
     Active Substance: FOLIC ACID
     Indication: CEREBRAL INFARCTION
     Dosage: UNK
     Route: 065
     Dates: start: 20111107
  16. GLUPA [Concomitant]
     Active Substance: METFORMIN HYDROCHLORIDE
     Indication: DIABETES MELLITUS
     Dosage: UNK
     Route: 065
     Dates: start: 20111202
  17. LOSARTAN CJ [Concomitant]
     Dosage: UNK
     Route: 065
     Dates: start: 20120103
  18. BLINDED PROBUCOL [Suspect]
     Active Substance: PROBUCOL
     Dosage: UNK
  19. SERMION [Concomitant]
     Active Substance: NICERGOLINE
     Indication: CEREBRAL INFARCTION
     Dosage: UNK
     Route: 065
     Dates: start: 20111107
  20. APIDRA SOLOSTAR [Concomitant]
     Active Substance: INSULIN GLULISINE
     Indication: PRODUCT USED FOR UNKNOWN INDICATION
     Dosage: UNK
     Route: 065
     Dates: start: 20111230
  21. BLINDED CILOSTAZOL [Suspect]
     Active Substance: CILOSTAZOL
     Dosage: UNK
     Route: 048
     Dates: end: 20120220
  22. MUCOSTA [Concomitant]
     Active Substance: REBAMIPIDE
     Indication: CEREBRAL INFARCTION
     Dosage: UNK
     Route: 065
     Dates: start: 20111107
  23. LIPITOR [Concomitant]
     Active Substance: ATORVASTATIN CALCIUM
     Indication: CEREBRAL INFARCTION
     Dosage: UNK
     Route: 065
     Dates: start: 20111231
  24. PROBUCOL [Suspect]
     Active Substance: PROBUCOL
     Dosage: UNK
  25. BLINDED *ASPIRIN [Suspect]
     Active Substance: ASPIRIN
     Dosage: UNK
     Route: 048
     Dates: end: 20120220
  26. PROBUCOL [Suspect]
     Active Substance: PROBUCOL
     Dosage: UNK
     Route: 065
     Dates: end: 20150220

REACTIONS (3)
  - Cerebral infarction [Recovered/Resolved]
  - Nephropathy [Recovered/Resolved]
  - Blood creatine increased [Recovered/Resolved]

NARRATIVE: CASE EVENT DATE: 20111230
